FAERS Safety Report 11120175 (Version 2)
Quarter: 2015Q2

REPORT INFORMATION
  Report Type: Report from Study
  Country: US (occurrence: US)
  Receive Date: 20150518
  Receipt Date: 20150602
  Transmission Date: 20150821
  Serious: Yes (Hospitalization, Other)
  Sender: FDA-Public Use
  Company Number: US-GILEAD-2015-0149582

PATIENT
  Age: 74 Year
  Sex: Female

DRUGS (2)
  1. IDELALISIB [Suspect]
     Active Substance: IDELALISIB
     Indication: LYMPHOMA
  2. IDELALISIB [Suspect]
     Active Substance: IDELALISIB
     Indication: B-CELL LYMPHOMA
     Dosage: 150 MG, BID
     Route: 048
     Dates: start: 20140930, end: 201502

REACTIONS (8)
  - Fatigue [Unknown]
  - Nausea [Recovered/Resolved]
  - Hypotension [Unknown]
  - Asthenia [Unknown]
  - Diarrhoea [Unknown]
  - Acute kidney injury [Unknown]
  - Dehydration [Unknown]
  - Retching [Recovered/Resolved]

NARRATIVE: CASE EVENT DATE: 201502
